FAERS Safety Report 24777395 (Version 2)
Quarter: 2025Q1

REPORT INFORMATION
  Report Type: Spontaneous
  Country: US (occurrence: US)
  Receive Date: 20241226
  Receipt Date: 20250107
  Transmission Date: 20250409
  Serious: Yes (Congenital Anomaly, Other)
  Sender: TEVA
  Company Number: US-TEVA-VS-3277009

PATIENT

DRUGS (1)
  1. DEXAMETHASONE [Suspect]
     Active Substance: DEXAMETHASONE
     Indication: Prophylaxis of nausea and vomiting
     Route: 064

REACTIONS (2)
  - Adrenogenital syndrome [Unknown]
  - Foetal exposure during pregnancy [Unknown]
